FAERS Safety Report 19925913 (Version 2)
Quarter: 2021Q4

REPORT INFORMATION
  Report Type: Spontaneous
  Country: NO (occurrence: NO)
  Receive Date: 20211006
  Receipt Date: 20211013
  Transmission Date: 20220304
  Serious: Yes (Other)
  Sender: FDA-Public Use
  Company Number: NO-ORGANON-O2109NOR002583

PATIENT
  Sex: Female

DRUGS (1)
  1. NEXPLANON [Suspect]
     Active Substance: ETONOGESTREL
     Dosage: 1 DOSAGE FORM
     Dates: start: 2018

REACTIONS (3)
  - Liposuction [Unknown]
  - Plastic surgery [Unknown]
  - Complication associated with device [Unknown]

NARRATIVE: CASE EVENT DATE: 20210101
